FAERS Safety Report 22522264 (Version 1)
Quarter: 2023Q2

REPORT INFORMATION
  Report Type: Spontaneous
  Country: KR (occurrence: KR)
  Receive Date: 20230605
  Receipt Date: 20230605
  Transmission Date: 20230722
  Serious: Yes (Hospitalization)
  Sender: FDA-Public Use
  Company Number: KR-ORGANON-O2305KOR003319

PATIENT
  Age: 68 Year
  Sex: Male

DRUGS (10)
  1. COZAAR [Suspect]
     Active Substance: LOSARTAN POTASSIUM
     Indication: Essential hypertension
     Dosage: UNK, FORMULATION: FILM-COATED TABLET
     Route: 048
     Dates: start: 20160701, end: 20160829
  2. TRIAMCINOLONE ACETONIDE [Suspect]
     Active Substance: TRIAMCINOLONE ACETONIDE
     Indication: Diabetic retinopathy
     Dosage: 4 MILLIGRAM, ONCE A DAY (QD), FORMULATION: OPTHALMIC INJECTION
     Route: 050
     Dates: start: 20160407, end: 20160519
  3. SODIUM HYALURONATE [Concomitant]
     Active Substance: HYALURONATE SODIUM
     Indication: Disorder of globe
     Dosage: UNK;  FORMULATION: OPTHALMIC INJECTION; ROUTE: EYES
     Dates: start: 20151113
  4. GLICLAZIDE [Concomitant]
     Active Substance: GLICLAZIDE
     Indication: Diabetes mellitus
     Dosage: UNK
     Route: 048
     Dates: start: 20160121, end: 20161212
  5. .ALPHA.-LIPOIC ACID [Concomitant]
     Active Substance: .ALPHA.-LIPOIC ACID
     Indication: Diabetic mononeuropathy
     Dosage: UNK; FORMULATION: SUSTAINED RELEASE FILM COATED TABLET
     Route: 048
     Dates: start: 20160308
  6. GABAPENTIN [Concomitant]
     Active Substance: GABAPENTIN
     Indication: Diabetic mononeuropathy
     Dosage: UNK;  FORMULATION: HARD CAPSULE, POWDER
     Route: 048
     Dates: start: 20160121, end: 20170206
  7. ROSUVASTATIN CALCIUM [Concomitant]
     Active Substance: ROSUVASTATIN CALCIUM
     Indication: Hyperlipidaemia
     Dosage: UNK
     Route: 048
     Dates: start: 20160701, end: 20170206
  8. CILOSTAZOL [Concomitant]
     Active Substance: CILOSTAZOL
     Indication: Essential hypertension
     Dosage: UNK;  FORMULATION: UNCOATED TABLET
     Route: 048
     Dates: start: 20160204, end: 20160829
  9. ASPIRIN [Concomitant]
     Active Substance: ASPIRIN
     Indication: Cardiac failure
     Dosage: UNK; FORMULATION: ENTERIC COATED FILM COATED TABLET
     Route: 048
     Dates: start: 20160830, end: 20170331
  10. CLOPIDOGREL BISULFATE [Concomitant]
     Active Substance: CLOPIDOGREL BISULFATE
     Indication: Cardiac failure
     Dosage: UNK
     Route: 048
     Dates: start: 20160830, end: 20170327

REACTIONS (1)
  - Angina pectoris [Recovered/Resolved]

NARRATIVE: CASE EVENT DATE: 20160904
